FAERS Safety Report 10220248 (Version 6)
Quarter: 2017Q4

REPORT INFORMATION
  Report Type: Report from Study
  Country: DE (occurrence: DE)
  Receive Date: 20140606
  Receipt Date: 20171122
  Transmission Date: 20180320
  Serious: Yes (Death, Hospitalization)
  Sender: FDA-Public Use
  Company Number: DE-ROCHE-1379087

PATIENT
  Age: 69 Year
  Sex: Male
  Weight: 75.1 kg

DRUGS (15)
  1. XELODA [Suspect]
     Active Substance: CAPECITABINE
     Indication: COLORECTAL CANCER
     Dosage: FROM D1 TO D14 OF EACH 3 WEEK CYCLE
     Route: 048
     Dates: start: 20131203, end: 20131216
  2. BEVACIZUMAB. [Suspect]
     Active Substance: BEVACIZUMAB
     Route: 042
     Dates: start: 20140305, end: 20140305
  3. ONDANSETRON [Concomitant]
     Active Substance: ONDANSETRON
     Indication: PROPHYLAXIS
     Dosage: 3 X 4 MG
     Route: 048
     Dates: start: 20131203
  4. ONDANSETRON [Concomitant]
     Active Substance: ONDANSETRON
     Indication: NAUSEA
  5. BEVACIZUMAB. [Suspect]
     Active Substance: BEVACIZUMAB
     Indication: COLORECTAL CANCER METASTATIC
     Route: 042
     Dates: start: 20131203, end: 20131203
  6. CIPROBAY [Concomitant]
     Active Substance: CIPROFLOXACIN
     Indication: COUGH
     Route: 048
     Dates: start: 20140107
  7. REFOBACIN [Concomitant]
     Active Substance: GENTAMICIN SULFATE
     Route: 065
     Dates: start: 20131230, end: 20140120
  8. FORTECORTIN [Concomitant]
     Active Substance: DEXAMETHASONE
     Indication: PAIN
     Route: 048
     Dates: start: 20140307
  9. XELODA [Suspect]
     Active Substance: CAPECITABINE
     Dosage: FROM D1 TO D14 OF EACH 3 WEEK CYCLE.
     Route: 048
     Dates: start: 20140305, end: 20140307
  10. PREDNISONE. [Concomitant]
     Active Substance: PREDNISONE
     Indication: PAIN
     Route: 048
     Dates: start: 20131130, end: 20131217
  11. STILNOX [Concomitant]
     Active Substance: ZOLPIDEM TARTRATE
     Indication: SLEEP DISORDER
     Route: 048
     Dates: start: 20140205
  12. ZOPICLON [Concomitant]
     Active Substance: ZOPICLONE
     Indication: SLEEP DISORDER
     Route: 048
     Dates: start: 20131130
  13. METAMIZOL [Concomitant]
     Active Substance: METAMIZOLE SODIUM
     Indication: PAIN
     Route: 065
     Dates: start: 20131203
  14. PANTOPRAZOLE [Concomitant]
     Active Substance: PANTOPRAZOLE
     Indication: PROPHYLAXIS AGAINST GASTROINTESTINAL ULCER
     Route: 048
     Dates: start: 20130307
  15. XELODA [Suspect]
     Active Substance: CAPECITABINE
     Dosage: FROM D1 TO D14 OF EACH 3 WEEK CYCLE.
     Route: 048
     Dates: start: 20140122, end: 20140204

REACTIONS (2)
  - Malignant neoplasm progression [Fatal]
  - General physical health deterioration [Fatal]

NARRATIVE: CASE EVENT DATE: 20140327
